FAERS Safety Report 12989031 (Version 1)
Quarter: 2016Q4

REPORT INFORMATION
  Report Type: Report from Study
  Country: NO (occurrence: NO)
  Receive Date: 20161201
  Receipt Date: 20161201
  Transmission Date: 20170207
  Serious: Yes (Death)
  Sender: FDA-Public Use
  Company Number: NO-ROCHE-1829122

PATIENT

DRUGS (4)
  1. ALTEPLASE [Suspect]
     Active Substance: ALTEPLASE
     Dosage: CONTINUEOUS INFUSION 0.01 MG/KG/HR
     Route: 050
  2. ALTEPLASE [Suspect]
     Active Substance: ALTEPLASE
     Indication: DEEP VEIN THROMBOSIS
     Dosage: AS BOLUS,?DOSE: FIXED-DOSE ALTEPLASE 20MG/15H
     Route: 050
  3. HEPARIN [Concomitant]
     Active Substance: HEPARIN SODIUM
     Dosage: CONTINUOUS INFUSION 300 IU/KG/24 HR.
     Route: 050
  4. HEPARIN [Concomitant]
     Active Substance: HEPARIN SODIUM
     Indication: DEEP VEIN THROMBOSIS
     Dosage: BOLUS 5000IE
     Route: 050

REACTIONS (1)
  - Death [Fatal]
